FAERS Safety Report 8999642 (Version 3)
Quarter: 2013Q4

REPORT INFORMATION
  Report Type: Spontaneous
  Country: PT (occurrence: PT)
  Receive Date: 20130103
  Receipt Date: 20131101
  Transmission Date: 20140711
  Serious: Yes (Death, Hospitalization, Other)
  Sender: FDA-Public Use
  Company Number: PT-BRISTOL-MYERS SQUIBB COMPANY-17247743

PATIENT
  Age: 64 Year
  Sex: Male

DRUGS (1)
  1. YERVOY [Suspect]
     Indication: MALIGNANT MELANOMA
     Dosage: 1DF= 2 IPILIMUMAB VIALS WERE USED ON EACH INF (200 + 50 MG)

REACTIONS (2)
  - Malignant neoplasm progression [Fatal]
  - Pseudomembranous colitis [Unknown]
